FAERS Safety Report 25852767 (Version 1)
Quarter: 2025Q3

REPORT INFORMATION
  Report Type: Spontaneous
  Country: US (occurrence: US)
  Receive Date: 20250926
  Receipt Date: 20250926
  Transmission Date: 20251021
  Serious: No
  Sender: GALPHARM INTERNATIONAL
  Company Number: US-PERRIGO-24US010833

PATIENT
  Sex: Female
  Weight: 95.238 kg

DRUGS (1)
  1. LEVONORGESTREL [Suspect]
     Active Substance: LEVONORGESTREL
     Indication: Post coital contraception
     Route: 048
     Dates: start: 202410, end: 202410

REACTIONS (2)
  - Urine odour abnormal [Unknown]
  - Dysuria [Unknown]

NARRATIVE: CASE EVENT DATE: 20241001
